FAERS Safety Report 5345728-4 (Version None)
Quarter: 2007Q2

REPORT INFORMATION
  Report Type: 
  Country: None (occurrence: None)
  Receive Date: 20070605
  Receipt Date: 20070601
  Transmission Date: 20071010
  Serious: Yes (Other)
  Sender: FDA-Public Use
  Company Number: FR-AVENTIS-200711840FR

PATIENT

DRUGS (1)
  1. BIRODOGYL [Suspect]

REACTIONS (1)
  - PANCREATITIS ACUTE [None]
